FAERS Safety Report 4675864-7 (Version None)
Quarter: 2005Q2

REPORT INFORMATION
  Report Type: 
  Country: None (occurrence: None)
  Receive Date: 20050525
  Receipt Date: 20050525
  Transmission Date: 20051028
  Serious: Yes (Other)
  Sender: FDA-Public Use
  Company Number: None

PATIENT
  Sex: Female

DRUGS (1)
  1. TRINESSA-28 [Suspect]
     Indication: CONTRACEPTION
     Dosage: ORAL DAILY
     Dates: start: 20050301, end: 20050401

REACTIONS (6)
  - BREAST TENDERNESS [None]
  - FEELING ABNORMAL [None]
  - MOOD SWINGS [None]
  - NAUSEA [None]
  - PHARMACEUTICAL PRODUCT COMPLAINT [None]
  - THERAPEUTIC RESPONSE UNEXPECTED WITH DRUG SUBSTITUTION [None]
